FAERS Safety Report 5508213-2 (Version None)
Quarter: 2007Q4

REPORT INFORMATION
  Report Type: 
  Country: None (occurrence: None)
  Receive Date: 20071106
  Receipt Date: 20071025
  Transmission Date: 20080405
  Serious: Yes (Other)
  Sender: FDA-Public Use
  Company Number: RU-PFIZER INC-2007090630

PATIENT
  Age: 79 Year
  Sex: Male

DRUGS (2)
  1. LATANOPROST [Suspect]
     Indication: GLAUCOMA
     Dates: start: 20071015, end: 20071016
  2. TIMOLOL MALEATE [Concomitant]

REACTIONS (3)
  - EYE PAIN [None]
  - HYPHAEMA [None]
  - INTRAOCULAR PRESSURE INCREASED [None]
